FAERS Safety Report 5001441-4 (Version None)
Quarter: 2006Q2

REPORT INFORMATION
  Report Type: 
  Country: None (occurrence: None)
  Receive Date: 20060512
  Receipt Date: 20050930
  Transmission Date: 20061013
  Serious: Yes (Death, Hospitalization)
  Sender: FDA-Public Use
  Company Number: US-MERCK-0510USA01778

PATIENT
  Age: 58 Year
  Sex: Male
  Weight: 110 kg

DRUGS (14)
  1. VIOXX [Suspect]
     Route: 048
  2. REGLAN [Concomitant]
     Route: 048
  3. MAALOX FAST BLOCKER [Concomitant]
     Route: 048
  4. LANOXIN [Concomitant]
     Route: 048
  5. NITROGLYCERIN [Concomitant]
     Indication: CHEST PAIN
     Route: 060
  6. VENTOLIN [Concomitant]
     Route: 055
  7. ASPIRIN [Concomitant]
     Route: 048
  8. MICRO-K [Concomitant]
     Route: 048
  9. PREVACID [Concomitant]
     Route: 048
  10. PRAVACHOL [Concomitant]
     Route: 048
  11. LOTENSIN [Concomitant]
     Route: 048
  12. LASIX [Concomitant]
     Route: 048
  13. TRANSDERM-NITRO [Concomitant]
     Route: 061
  14. ISOTARD (ISOSORBIDE DINITRATE) [Concomitant]
     Route: 048

REACTIONS (9)
  - ATRIAL FIBRILLATION [None]
  - CARDIAC FAILURE CONGESTIVE [None]
  - CARDIAC VALVE DISEASE [None]
  - CARDIOMEGALY [None]
  - CHEST PAIN [None]
  - CORONARY ARTERY DISEASE [None]
  - EJECTION FRACTION DECREASED [None]
  - GASTRITIS [None]
  - MYOCARDIAL INFARCTION [None]
